FAERS Safety Report 25434869 (Version 4)
Quarter: 2025Q4

REPORT INFORMATION
  Report Type: Spontaneous
  Country: JP (occurrence: JP)
  Receive Date: 20250613
  Receipt Date: 20251022
  Transmission Date: 20260118
  Serious: Yes (Death, Hospitalization, Other)
  Sender: VERICEL
  Company Number: JP-VERICEL-JP-VCEL-25-000172

PATIENT
  Age: 25 Year
  Sex: Female

DRUGS (2)
  1. BROMELAINS [Suspect]
     Active Substance: BROMELAINS
     Indication: Burns third degree
     Dosage: 5 PERCENT, SINGLE
     Route: 061
     Dates: start: 20231116, end: 20231116
  2. UNSPECIFIED INGREDIENT [Concomitant]
     Active Substance: UNSPECIFIED INGREDIENT
     Indication: Product used for unknown indication
     Dosage: UNK
     Route: 065
     Dates: start: 2023

REACTIONS (4)
  - Sepsis [Fatal]
  - Pseudomonas infection [Unknown]
  - Fungaemia [Unknown]
  - Staphylococcal infection [Unknown]

NARRATIVE: CASE EVENT DATE: 20230101
